FAERS Safety Report 12770016 (Version 1)
Quarter: 2016Q3

REPORT INFORMATION
  Report Type: Spontaneous
  Country: US (occurrence: US)
  Receive Date: 20160922
  Receipt Date: 20160922
  Transmission Date: 20161109
  Serious: No
  Sender: FDA-Public Use
  Company Number: US-DRREDDYS-USA/USA/15/0054561

PATIENT
  Age: 1 Year
  Sex: Male

DRUGS (1)
  1. RANITIDINE TABLETS [Suspect]
     Active Substance: RANITIDINE HYDROCHLORIDE
     Indication: PRODUCT USED FOR UNKNOWN INDICATION
     Route: 048
     Dates: start: 20151202

REACTIONS (2)
  - Accidental exposure to product by child [Unknown]
  - No adverse event [Unknown]

NARRATIVE: CASE EVENT DATE: 20151202
